FAERS Safety Report 6151026-1 (Version None)
Quarter: 2009Q2

REPORT INFORMATION
  Report Type: 
  Country: None (occurrence: None)
  Receive Date: 20090410
  Receipt Date: 20090304
  Transmission Date: 20091009
  Serious: No
  Sender: FDA-Public Use
  Company Number: A0771336A

PATIENT
  Age: 47 Year
  Sex: Female

DRUGS (9)
  1. TYKERB [Suspect]
     Dosage: 1250MG PER DAY
     Route: 048
     Dates: start: 20090227
  2. OMEPRAZOLE [Concomitant]
  3. LEVETIRACETAM [Concomitant]
  4. DEXAMETHASONE 4MG TAB [Concomitant]
  5. AMLODIPINE [Concomitant]
  6. LORAZEPAM [Concomitant]
  7. M.V.I. [Concomitant]
  8. IRON [Concomitant]
  9. CALTRATE [Concomitant]

REACTIONS (2)
  - CONSTIPATION [None]
  - DIARRHOEA [None]
